FAERS Safety Report 23453310 (Version 2)
Quarter: 2024Q1

REPORT INFORMATION
  Report Type: Spontaneous
  Country: US (occurrence: US)
  Receive Date: 20240129
  Receipt Date: 20240131
  Transmission Date: 20240410
  Serious: No
  Sender: FDA-Public Use
  Company Number: US-002147023-NVSC2024US019389

PATIENT
  Sex: Female

DRUGS (1)
  1. ILARIS [Suspect]
     Active Substance: CANAKINUMAB
     Indication: Product used for unknown indication
     Dosage: 300 MG (3 INJECTIONS EVERY 4 WEEKS)
     Route: 065

REACTIONS (2)
  - Infection [Unknown]
  - Laryngitis [Unknown]

NARRATIVE: CASE EVENT DATE: 20240104
